FAERS Safety Report 24037200 (Version 1)
Quarter: 2024Q3

REPORT INFORMATION
  Report Type: Report from Study
  Country: US (occurrence: US)
  Receive Date: 20240701
  Receipt Date: 20240701
  Transmission Date: 20241017
  Serious: Yes (Other)
  Sender: ABBVIE
  Company Number: US-ABBVIE-5819882

PATIENT
  Sex: Female

DRUGS (1)
  1. HUMIRA [Suspect]
     Active Substance: ADALIMUMAB
     Indication: Hidradenitis
     Dosage: FORM STRENGTH 40  MILLIGRAM CITRATE FREE
     Route: 058
     Dates: start: 202404

REACTIONS (1)
  - Foreign body in throat [Recovering/Resolving]

NARRATIVE: CASE EVENT DATE: 20240101
